FAERS Safety Report 24243420 (Version 1)
Quarter: 2024Q3

REPORT INFORMATION
  Report Type: Spontaneous
  Country: CA (occurrence: CA)
  Receive Date: 20240823
  Receipt Date: 20240823
  Transmission Date: 20241016
  Serious: Yes (Death, Life-Threatening, Other)
  Sender: BAXTER
  Company Number: CA-BAXTER-2024BAX023261

PATIENT
  Age: 14 Year
  Sex: Female
  Weight: 53 kg

DRUGS (3)
  1. CYCLOPHOSPHAMIDE [Suspect]
     Active Substance: CYCLOPHOSPHAMIDE
     Indication: Transplant
     Dosage: 2600 MG, 1 EVERY 1 DAY, DOSAGE FORM: NOT SPECIFIED
     Route: 042
  2. FLUDARABINE [Suspect]
     Active Substance: FLUDARABINE PHOSPHATE
     Indication: Transplant
     Dosage: 63 MG, 1 EVERY 1 DAY, DOSAGE FORM: NOT SPECIFIED
     Route: 042
  3. THYMOCYTE IMMUNE GLOBULIN NOS [Concomitant]
     Active Substance: THYMOCYTE IMMUNE GLOBULIN NOS
     Dosage: UNK
     Route: 065

REACTIONS (6)
  - Anaemia [Fatal]
  - Aplastic anaemia [Fatal]
  - Febrile neutropenia [Fatal]
  - Neutropenia [Fatal]
  - Staphylococcal bacteraemia [Fatal]
  - Thrombocytopenia [Fatal]
